FAERS Safety Report 18324935 (Version 2)
Quarter: 2020Q4

REPORT INFORMATION
  Report Type: Spontaneous
  Country: GB (occurrence: GB)
  Receive Date: 20200928
  Receipt Date: 20201006
  Transmission Date: 20210113
  Serious: Yes (Hospitalization)
  Sender: FDA-Public Use
  Company Number: GB-BEH-2020122395

PATIENT
  Age: 58 Year
  Sex: Female

DRUGS (3)
  1. HIZENTRA [Suspect]
     Active Substance: HUMAN IMMUNOGLOBULIN G
     Dosage: 22 GRAM, QW
     Route: 058
     Dates: start: 20200901, end: 20200901
  2. HIZENTRA [Suspect]
     Active Substance: HUMAN IMMUNOGLOBULIN G
     Indication: STIFF PERSON SYNDROME
     Dosage: 1.4 GRAMS IN 7 MILLILITERS OF HER FIRST DOSE
     Route: 058
     Dates: start: 20200901, end: 20200901
  3. HIZENTRA [Suspect]
     Active Substance: HUMAN IMMUNOGLOBULIN G
     Dosage: UNK
     Route: 058

REACTIONS (14)
  - Acute coronary syndrome [Recovered/Resolved]
  - Chest pain [Recovered/Resolved]
  - Dizziness [Recovered/Resolved]
  - Hyperhidrosis [Recovered/Resolved]
  - Product use in unapproved indication [Unknown]
  - Pallor [Recovered/Resolved]
  - Injection site erythema [Recovered/Resolved]
  - No adverse event [Unknown]
  - Hot flush [Recovered/Resolved]
  - Presyncope [Recovered/Resolved]
  - Electrocardiogram T wave inversion [Recovered/Resolved]
  - Hypotension [Recovered/Resolved]
  - Injection site reaction [Recovered/Resolved]
  - Erythema [Recovered/Resolved]

NARRATIVE: CASE EVENT DATE: 20200901
